FAERS Safety Report 24292877 (Version 1)
Quarter: 2024Q3

REPORT INFORMATION
  Report Type: Spontaneous
  Country: US (occurrence: None)
  Receive Date: 20240906
  Receipt Date: 20240906
  Transmission Date: 20241017
  Serious: No
  Sender: DOMPE FARMACEUTICI
  Company Number: US-FARMAPROD-202308-202310-3178

PATIENT
  Sex: Female

DRUGS (22)
  1. OXERVATE [Suspect]
     Active Substance: CENEGERMIN-BKBJ
     Indication: Neurotrophic keratopathy
     Route: 047
     Dates: start: 20230629, end: 20230824
  2. OXERVATE [Suspect]
     Active Substance: CENEGERMIN-BKBJ
     Route: 047
     Dates: start: 20231018
  3. OXERVATE [Suspect]
     Active Substance: CENEGERMIN-BKBJ
  4. OXERVATE [Suspect]
     Active Substance: CENEGERMIN-BKBJ
  5. CLARITIN [Concomitant]
     Active Substance: LORATADINE
  6. ZETIA [Concomitant]
     Active Substance: EZETIMIBE
  7. MINERALS\VITAMINS [Concomitant]
     Active Substance: MINERALS\VITAMINS
  8. FISH OIL-OMEGA-3-VIT D [Concomitant]
  9. PROBIOTIC-10 [Concomitant]
     Dosage: 10 BILLION-100 MG
  10. GABAPENTIN [Concomitant]
     Active Substance: GABAPENTIN
  11. ESTRADIOL [Concomitant]
     Active Substance: ESTRADIOL
     Dosage: WITH APPLICATOR.
  12. XIIDRA [Concomitant]
     Active Substance: LIFITEGRAST
  13. IBUPROFEN [Concomitant]
     Active Substance: IBUPROFEN
  14. ATROPINE SULFATE [Concomitant]
     Active Substance: ATROPINE SULFATE
  15. MOXIFLOXACIN [Concomitant]
     Active Substance: MOXIFLOXACIN
  16. PREDNISOLONE-NEPAFENAC [Concomitant]
  17. TIMOLOL MALEATE [Concomitant]
     Active Substance: TIMOLOL MALEATE
  18. LUMIGAN [Concomitant]
     Active Substance: BIMATOPROST
  19. UNSPECIFIED INGREDIENT [Concomitant]
     Active Substance: UNSPECIFIED INGREDIENT
  20. LASIX [Concomitant]
     Active Substance: FUROSEMIDE
  21. DOXYCYCLINE [Concomitant]
     Active Substance: DOXYCYCLINE\DOXYCYCLINE HYCLATE
  22. STERILE TALC [Concomitant]
     Active Substance: TALC
     Dosage: VIAL

REACTIONS (1)
  - Intentional product misuse [Unknown]
